FAERS Safety Report 5194194-0 (Version None)
Quarter: 2006Q4

REPORT INFORMATION
  Report Type: 
  Country: None (occurrence: None)
  Receive Date: 20061222
  Receipt Date: 20061212
  Transmission Date: 20070319
  Serious: Yes (Hospitalization)
  Sender: FDA-Public Use
  Company Number: 061213-0001115

PATIENT
  Age: 17 Year
  Sex: Female

DRUGS (4)
  1. METHAMPHETAMINE HYDROCHLORIDE [Suspect]
     Indication: INTENTIONAL DRUG MISUSE
     Dosage: BID; INH
     Route: 055
  2. VITAMIN B-12 [Concomitant]
  3. ACTIGALL [Concomitant]
  4. OMEPRAZOLE [Concomitant]

REACTIONS (6)
  - ASTHENIA [None]
  - BRADYCARDIA [None]
  - DECREASED APPETITE [None]
  - DIZZINESS [None]
  - DRUG ABUSER [None]
  - MALNUTRITION [None]
